FAERS Safety Report 25086860 (Version 1)
Quarter: 2025Q1

REPORT INFORMATION
  Report Type: Report from Study
  Country: BR (occurrence: BR)
  Receive Date: 20250318
  Receipt Date: 20250318
  Transmission Date: 20250409
  Serious: Yes (Hospitalization, Disabling, Other)
  Sender: CELLTRION
  Company Number: BR-CELLTRION INC.-2022BR014961

PATIENT

DRUGS (5)
  1. INFLIXIMAB-DYYB [Suspect]
     Active Substance: INFLIXIMAB-DYYB
     Indication: Rheumatoid arthritis
     Route: 042
     Dates: start: 2019
  2. INFLIXIMAB-DYYB [Suspect]
     Active Substance: INFLIXIMAB-DYYB
     Route: 042
     Dates: start: 20220808
  3. INFLIXIMAB-DYYB [Suspect]
     Active Substance: INFLIXIMAB-DYYB
     Route: 042
     Dates: start: 20221003
  4. DULOXETINE HYDROCHLORIDE [Concomitant]
     Active Substance: DULOXETINE HYDROCHLORIDE
     Indication: Fibromyalgia
     Route: 048
     Dates: start: 2018
  5. LEFLUNOMIDE [Concomitant]
     Active Substance: LEFLUNOMIDE
     Indication: Rheumatoid arthritis
     Route: 048

REACTIONS (8)
  - Inguinal hernia repair [Unknown]
  - Sciatica [Recovering/Resolving]
  - Gait inability [Unknown]
  - Headache [Unknown]
  - Fatigue [Unknown]
  - Pain [Unknown]
  - Somnolence [Unknown]
  - Intentional dose omission [Unknown]

NARRATIVE: CASE EVENT DATE: 20231230
